FAERS Safety Report 23152338 (Version 1)
Quarter: 2023Q4

REPORT INFORMATION
  Report Type: Spontaneous
  Country: CN (occurrence: CN)
  Receive Date: 20231107
  Receipt Date: 20231107
  Transmission Date: 20240109
  Serious: Yes (Other)
  Sender: FDA-Public Use
  Company Number: CN-GLAXOSMITHKLINE-CN2023APC151298

PATIENT

DRUGS (3)
  1. LAMICTAL [Suspect]
     Active Substance: LAMOTRIGINE
     Indication: Depression
     Dosage: 25 MG, BID
     Route: 048
     Dates: start: 20231012, end: 20231025
  2. SERTRALINE HYDROCHLORIDE [Suspect]
     Active Substance: SERTRALINE HYDROCHLORIDE
     Indication: Depression
     Dosage: 50 MG, BID
     Route: 048
     Dates: start: 20231018, end: 20231031
  3. CHLORPHENIRAMINE MALEATE [Concomitant]
     Active Substance: CHLORPHENIRAMINE MALEATE
     Indication: Symptomatic treatment
     Dosage: UNK

REACTIONS (10)
  - Dermatitis exfoliative [Recovered/Resolved]
  - Lip ulceration [Recovered/Resolved]
  - Oral pain [Recovered/Resolved]
  - Rash erythematous [Recovered/Resolved]
  - Pruritus [Recovered/Resolved]
  - Lip blister [Recovered/Resolved]
  - Stomatitis [Recovered/Resolved]
  - Tongue coated [Recovered/Resolved]
  - Gingival pain [Recovered/Resolved]
  - Erythema [Recovered/Resolved]

NARRATIVE: CASE EVENT DATE: 20231025
